FAERS Safety Report 4681957-0 (Version None)
Quarter: 2005Q2

REPORT INFORMATION
  Report Type: 
  Country: None (occurrence: None)
  Receive Date: 20050602
  Receipt Date: 20050520
  Transmission Date: 20051028
  Serious: Yes (Death)
  Sender: FDA-Public Use
  Company Number: HQWYE898624MAY05

PATIENT
  Age: 86 Year
  Sex: Female

DRUGS (1)
  1. AMIODARONE (AMIODARONE) [Suspect]
     Indication: HEART RATE IRREGULAR
     Dates: start: 20040401

REACTIONS (2)
  - CIRCULATORY COLLAPSE [None]
  - DYSPNOEA [None]
